FAERS Safety Report 15480778 (Version 4)
Quarter: 2019Q1

REPORT INFORMATION
  Report Type: Report from Study
  Country: CZ (occurrence: CZ)
  Receive Date: 20181010
  Receipt Date: 20190212
  Transmission Date: 20190417
  Serious: Yes (Other)
  Sender: FDA-Public Use
  Company Number: PHHY2017CZ035024

PATIENT
  Age: 56 Year
  Sex: Female

DRUGS (10)
  1. COSENTYX [Suspect]
     Active Substance: SECUKINUMAB
     Dosage: UNK
     Route: 065
     Dates: start: 20180430
  2. COSENTYX [Suspect]
     Active Substance: SECUKINUMAB
     Dosage: UNK
     Route: 065
     Dates: start: 20160321
  3. DESLORATADIN [Concomitant]
     Active Substance: DESLORATADINE
     Indication: PROPHYLAXIS
     Dosage: 5 MG, UNK
     Route: 065
     Dates: start: 20160222
  4. IBUPROFEN. [Concomitant]
     Active Substance: IBUPROFEN
     Indication: PRODUCT USED FOR UNKNOWN INDICATION
     Dosage: 400 MG, UNK
     Route: 065
     Dates: start: 2010
  5. COSENTYX [Suspect]
     Active Substance: SECUKINUMAB
     Indication: PSORIASIS
     Dosage: 300 MG, UNK
     Route: 065
     Dates: start: 20160222, end: 20160321
  6. COSENTYX [Suspect]
     Active Substance: SECUKINUMAB
     Dosage: 300 MG, UNK (PREFILLED SYRINGE)
     Route: 065
     Dates: start: 20160418
  7. COSENTYX [Suspect]
     Active Substance: SECUKINUMAB
     Dosage: 300 MG, UNK (PREFILLED SYRINGE)
     Route: 065
     Dates: start: 20190131
  8. CEFUROXIME. [Concomitant]
     Active Substance: CEFUROXIME
     Indication: PRODUCT USED FOR UNKNOWN INDICATION
     Dosage: 500 MG, UNK
     Route: 065
     Dates: start: 20170601, end: 20170606
  9. COSENTYX [Suspect]
     Active Substance: SECUKINUMAB
     Dosage: UNK
     Route: 065
  10. COSENTYX [Suspect]
     Active Substance: SECUKINUMAB
     Dosage: UNK
     Route: 065

REACTIONS (16)
  - Nasopharyngitis [Recovered/Resolved]
  - Nasopharyngitis [Recovered/Resolved]
  - Urinary tract infection [Recovered/Resolved]
  - Nasopharyngitis [Recovered/Resolved]
  - Lymphadenitis bacterial [Recovered/Resolved]
  - Scratch [Unknown]
  - Nasopharyngitis [Recovered/Resolved]
  - Psoriasis [Unknown]
  - Enteritis [Recovered/Resolved]
  - Oral candidiasis [Recovered/Resolved]
  - Enteritis [Recovered/Resolved]
  - Dermatitis contact [Recovering/Resolving]
  - Ear pain [Not Recovered/Not Resolved]
  - Pruritus [Unknown]
  - Nasopharyngitis [Recovered/Resolved]
  - Nasopharyngitis [Recovered/Resolved]

NARRATIVE: CASE EVENT DATE: 20170116
